FAERS Safety Report 23853413 (Version 3)
Quarter: 2024Q3

REPORT INFORMATION
  Report Type: Report from Study
  Country: IN (occurrence: IN)
  Receive Date: 20240514
  Receipt Date: 20240712
  Transmission Date: 20241017
  Serious: Yes (Hospitalization, Other)
  Sender: INCYTE
  Company Number: IN-002147023-NVSC2024IN099861

PATIENT

DRUGS (3)
  1. RUXOLITINIB [Suspect]
     Active Substance: RUXOLITINIB
     Indication: Myeloproliferative neoplasm
     Dosage: 5 MG, BID
     Route: 048
     Dates: start: 20240501
  2. RUXOLITINIB [Suspect]
     Active Substance: RUXOLITINIB
     Indication: Myelodysplastic syndrome
  3. RUXOLITINIB [Suspect]
     Active Substance: RUXOLITINIB
     Indication: Myelofibrosis

REACTIONS (13)
  - Tuberculosis [Unknown]
  - Bone marrow disorder [Recovering/Resolving]
  - Somnolence [Recovering/Resolving]
  - Haemoglobin decreased [Recovering/Resolving]
  - Hypersomnia [Recovering/Resolving]
  - Neutropenic sepsis [Recovering/Resolving]
  - Myeloproliferative neoplasm [Recovering/Resolving]
  - Splenomegaly [Unknown]
  - Platelet count decreased [Recovering/Resolving]
  - Fatigue [Recovering/Resolving]
  - Upper gastrointestinal haemorrhage [Recovering/Resolving]
  - Gastritis [Recovering/Resolving]
  - White blood cell count decreased [Recovering/Resolving]

NARRATIVE: CASE EVENT DATE: 20240503
